FAERS Safety Report 7564923-7 (Version None)
Quarter: 2011Q2

REPORT INFORMATION
  Report Type: 
  Country: None (occurrence: None)
  Receive Date: 20110622
  Receipt Date: 20110517
  Transmission Date: 20111010
  Serious: Yes (Other)
  Sender: FDA-Public Use
  Company Number: US-MYLANLABS-2011S1003569

PATIENT
  Age: 34 Year
  Sex: Female

DRUGS (7)
  1. CLOZAPINE [Suspect]
     Indication: SCHIZOAFFECTIVE DISORDER
     Dates: end: 20110228
  2. CYMBALTA [Concomitant]
  3. BENZTROPINE MESYLATE [Concomitant]
  4. CLOZAPINE [Suspect]
     Dates: start: 20110307
  5. DEPAKOTE [Concomitant]
     Dosage: USING DEPAKOTE, 500MG X 2
  6. SEROQUEL [Concomitant]
     Dosage: 200MG BID AND 100MG QD
  7. RISPERIDONE [Concomitant]

REACTIONS (2)
  - GRANULOCYTOPENIA [None]
  - LEUKOPENIA [None]
